FAERS Safety Report 12167827 (Version 2)
Quarter: 2016Q1

REPORT INFORMATION
  Report Type: Spontaneous
  Country: DE (occurrence: DE)
  Receive Date: 20160310
  Receipt Date: 20160318
  Transmission Date: 20160526
  Serious: Yes (Hospitalization)
  Sender: FDA-Public Use
  Company Number: DE-WEST-WARD PHARMACEUTICALS CORP.-DE-H14001-16-00411

PATIENT
  Age: 13 Year
  Sex: Male
  Weight: 31.7 kg

DRUGS (1)
  1. AMIODARONE [Suspect]
     Active Substance: AMIODARONE
     Indication: ATRIAL FLUTTER
     Route: 065

REACTIONS (2)
  - Pigmentation disorder [Recovered/Resolved]
  - Pulmonary mass [Not Recovered/Not Resolved]
